FAERS Safety Report 17300329 (Version 1)
Quarter: 2020Q1

REPORT INFORMATION
  Report Type: Spontaneous
  Country: US (occurrence: US)
  Receive Date: 20200103
  Receipt Date: 20200103
  Transmission Date: 20200409
  Serious: No
  Sender: FDA-Public Use
  Company Number: None

PATIENT
  Age: 58 Year
  Sex: Female

DRUGS (1)
  1. HUMIRA [Suspect]
     Active Substance: ADALIMUMAB
     Indication: ANKYLOSING SPONDYLITIS
     Route: 058
     Dates: start: 20190624

REACTIONS (5)
  - Mood swings [None]
  - Anxiety [None]
  - Insomnia [None]
  - Fatigue [None]
  - Depression [None]

NARRATIVE: CASE EVENT DATE: 201912
